FAERS Safety Report 25602436 (Version 2)
Quarter: 2025Q3

REPORT INFORMATION
  Report Type: Spontaneous
  Country: US (occurrence: US)
  Receive Date: 20250724
  Receipt Date: 20250731
  Transmission Date: 20251020
  Serious: Yes (Life-Threatening, Hospitalization, Other)
  Sender: ORGANON
  Company Number: US-ORGANON-O2507USA001863

PATIENT
  Sex: Female

DRUGS (2)
  1. FOSAMAX [Suspect]
     Active Substance: ALENDRONATE SODIUM
     Dosage: UNK, ONCE A WEEK
     Route: 048
     Dates: start: 2024
  2. RECLAST [Suspect]
     Active Substance: ZOLEDRONIC ACID
     Dates: start: 20250611

REACTIONS (8)
  - Heart rate decreased [Unknown]
  - Nephritis [Unknown]
  - Pain [Unknown]
  - Blood calcium decreased [Unknown]
  - Vitamin C decreased [Unknown]
  - Vomiting [Unknown]
  - Abdominal discomfort [Unknown]
  - Drug effect less than expected [Unknown]

NARRATIVE: CASE EVENT DATE: 20250101
